FAERS Safety Report 6810086-2 (Version None)
Quarter: 2010Q2

REPORT INFORMATION
  Report Type: 
  Country: None (occurrence: None)
  Receive Date: 20100630
  Receipt Date: 20100622
  Transmission Date: 20101027
  Serious: Yes (Death, Other)
  Sender: FDA-Public Use
  Company Number: JP-MILLENNIUM PHARMACEUTICALS, INC.-2010-03189

PATIENT

DRUGS (2)
  1. VELCADE [Suspect]
     Indication: MULTIPLE MYELOMA
     Dosage: 1.3 MG/M2, UNK
  2. VELCADE [Suspect]
     Dosage: 1.0 MG/M2, UNK

REACTIONS (4)
  - ACUTE RESPIRATORY FAILURE [None]
  - DISEASE PROGRESSION [None]
  - PLASMACYTOMA [None]
  - PLEURAL EFFUSION [None]
